FAERS Safety Report 9778982 (Version 1)
Quarter: 2013Q4

REPORT INFORMATION
  Report Type: Spontaneous
  Country: LB (occurrence: LB)
  Receive Date: 20131223
  Receipt Date: 20131223
  Transmission Date: 20140711
  Serious: Yes (Hospitalization)
  Sender: FDA-Public Use
  Company Number: PHHY2013LB146984

PATIENT
  Age: 5 Year
  Sex: Female

DRUGS (7)
  1. METHOTREXATE [Suspect]
     Indication: ACUTE LYMPHOCYTIC LEUKAEMIA
     Dosage: 12 MG, UNK
     Route: 037
  2. PREDNISONE [Suspect]
     Indication: ACUTE LYMPHOCYTIC LEUKAEMIA
     Dosage: 60 MG/M2, PER DAY
     Route: 048
  3. VINCRISTINE [Suspect]
     Indication: ACUTE LYMPHOCYTIC LEUKAEMIA
     Dosage: 1.5 MG/M2, UNK
     Route: 042
  4. HYDROCORTISONE [Suspect]
     Indication: ACUTE LYMPHOCYTIC LEUKAEMIA
     Dosage: 12 MG, UNK
     Route: 037
  5. DAUNORUBICIN [Suspect]
     Indication: ACUTE LYMPHOCYTIC LEUKAEMIA
     Dosage: 30 MG/M2, UNK
     Route: 042
  6. L-ASPARAGINASE [Suspect]
     Indication: ACUTE LYMPHOCYTIC LEUKAEMIA
     Dosage: 1000 U PER SQ.M
     Route: 037
  7. CYTOSINE ARABINOSIDE [Suspect]
     Indication: ACUTE LYMPHOCYTIC LEUKAEMIA
     Dosage: 30 MG, UNK
     Route: 037

REACTIONS (14)
  - Stomatitis [Recovered/Resolved]
  - Oral pain [Recovered/Resolved]
  - Pyrexia [Recovered/Resolved]
  - Lethargy [Recovered/Resolved]
  - Pallor [Recovered/Resolved]
  - Oral mucosal erythema [Recovered/Resolved]
  - Stomatitis necrotising [Recovered/Resolved]
  - Oral disorder [Recovered/Resolved]
  - Mouth haemorrhage [Recovered/Resolved]
  - Oral administration complication [Recovered/Resolved]
  - Candida infection [Recovered/Resolved]
  - Staphylococcal infection [Recovered/Resolved]
  - Tongue injury [Recovered/Resolved]
  - Speech disorder [Recovered/Resolved]
